FAERS Safety Report 4917165-5 (Version None)
Quarter: 2006Q1

REPORT INFORMATION
  Report Type: 
  Country: None (occurrence: None)
  Receive Date: 20060221
  Receipt Date: 20060206
  Transmission Date: 20060701
  Serious: Yes (Hospitalization)
  Sender: FDA-Public Use
  Company Number: SE-AVENTIS-200610671EU

PATIENT
  Age: 88 Year
  Sex: Female

DRUGS (15)
  1. KLEXANE [Suspect]
     Indication: MYOCARDIAL INFARCTION
     Dates: start: 20051025
  2. KLEXANE [Suspect]
     Indication: HYPERTONIA
     Dates: start: 20051025
  3. DIGOXIN [Suspect]
     Route: 048
     Dates: start: 20051025
  4. TROMBYL [Suspect]
     Indication: ATRIAL FIBRILLATION
     Route: 048
  5. PLAVIX [Suspect]
     Indication: MYOCARDIAL INFARCTION
     Route: 048
     Dates: start: 20051025
  6. PLAVIX [Suspect]
     Indication: HYPERTONIA
     Route: 048
     Dates: start: 20051025
  7. OXIS TURBOHALER [Concomitant]
  8. ENALAPRIL [Concomitant]
  9. IMPUGAN [Concomitant]
  10. PREDNISOLON PFIZER [Concomitant]
  11. REMERON [Concomitant]
  12. VERAPAMIL [Concomitant]
  13. TRIOBE [Concomitant]
  14. SERETIDE DISKUS [Concomitant]
  15. ATROVENT [Concomitant]

REACTIONS (5)
  - BUNDLE BRANCH BLOCK [None]
  - CARDIOACTIVE DRUG LEVEL ABOVE THERAPEUTIC [None]
  - GASTROINTESTINAL HAEMORRHAGE [None]
  - MYOCARDIAL INFARCTION [None]
  - POISONING [None]
